FAERS Safety Report 6491918-7 (Version None)
Quarter: 2009Q4

REPORT INFORMATION
  Report Type: 
  Country: None (occurrence: None)
  Receive Date: 20091125
  Receipt Date: 20090827
  Transmission Date: 20100525
  Serious: Yes (Hospitalization)
  Sender: FDA-Public Use
  Company Number: 2009BH013305

PATIENT
  Age: 68 Year
  Sex: Female

DRUGS (9)
  1. DIANEAL [Suspect]
     Indication: PERITONEAL DIALYSIS
     Dosage: 10 L; EVERY DAY; IP
     Route: 033
     Dates: start: 20081024
  2. ZYRTEC [Concomitant]
  3. ARANESP [Concomitant]
  4. ASPIRIN [Concomitant]
  5. GENTAMICIN [Concomitant]
  6. NEPHROCAPS [Concomitant]
  7. METOPROLOL [Concomitant]
  8. TUMS [Concomitant]
  9. VITAMIN D [Concomitant]

REACTIONS (1)
  - PERITONITIS [None]
